FAERS Safety Report 6980122-1 (Version None)
Quarter: 2010Q3

REPORT INFORMATION
  Report Type: 
  Country: None (occurrence: None)
  Receive Date: 20100914
  Receipt Date: 20100907
  Transmission Date: 20110219
  Serious: Yes (Hospitalization)
  Sender: FDA-Public Use
  Company Number: NL-MPIJNJ-2010-03540

PATIENT

DRUGS (9)
  1. VELCADE [Suspect]
     Indication: MYELODYSPLASTIC SYNDROME
     Dosage: 2.4 MG, UNK
     Route: 042
     Dates: start: 20100614, end: 20100628
  2. ZARNESTRA [Suspect]
     Indication: MYELODYSPLASTIC SYNDROME
     Dosage: 400 MG, UNK
     Route: 048
     Dates: start: 20100607, end: 20100627
  3. ZARNESTRA [Suspect]
     Dosage: 200 UNK, UNK
     Dates: start: 20100707, end: 20100707
  4. EXJADE [Concomitant]
     Indication: IRON OVERLOAD
  5. SIMVASTATIN [Concomitant]
     Dosage: 40 MG, BID
  6. PLAVIX [Concomitant]
     Dosage: 75 MG, QD
  7. ACETOSAL [Concomitant]
     Dosage: 75 MG, QD
  8. METOPROLOL TARTRATE [Concomitant]
     Dosage: 200 MG, QD
  9. OXAZEPAM [Concomitant]
     Indication: NERVOUSNESS
     Dosage: UNK

REACTIONS (7)
  - ATELECTASIS [None]
  - CANDIDIASIS [None]
  - DEHYDRATION [None]
  - DIARRHOEA [None]
  - PLEURAL EFFUSION [None]
  - PNEUMONIA [None]
  - PULMONARY OEDEMA [None]
